FAERS Safety Report 6241435-4 (Version None)
Quarter: 2009Q2

REPORT INFORMATION
  Report Type: 
  Country: None (occurrence: None)
  Receive Date: 20090619
  Receipt Date: 20090619
  Transmission Date: 20091009
  Serious: No
  Sender: FDA-Public Use
  Company Number: None

PATIENT
  Age: 54 Year
  Sex: Female
  Weight: 78.4723 kg

DRUGS (2)
  1. ZICAM COLD REMEDY ZINCUM GLUCONICUM 2X MATRIXX INITATIVES [Suspect]
     Indication: NASOPHARYNGITIS
     Dosage: 1 SQUIRT EACH NOSTRIL AS NEEDED NASAL
     Route: 045
     Dates: start: 20070205, end: 20070215
  2. ZICAM COLD REMEDY ZINCUM GLUCONICUM 2X MATRIXX INITATIVES [Suspect]
     Indication: SINUSITIS
     Dosage: 1 SQUIRT EACH NOSTRIL AS NEEDED NASAL
     Route: 045
     Dates: start: 20070205, end: 20070215

REACTIONS (3)
  - ANOSMIA [None]
  - BURNING SENSATION [None]
  - LACRIMATION INCREASED [None]
